FAERS Safety Report 7457144-X (Version None)
Quarter: 2011Q2

REPORT INFORMATION
  Report Type: 
  Country: None (occurrence: None)
  Receive Date: 20110504
  Receipt Date: 20100627
  Transmission Date: 20111010
  Serious: No
  Sender: FDA-Public Use
  Company Number: US-BAYER-201027640NA

PATIENT
  Age: 18 Year
  Sex: Female

DRUGS (2)
  1. YAZ [Suspect]
     Indication: MENSTRUATION IRREGULAR
  2. YAZ [Suspect]
     Indication: CONTRACEPTION
     Dosage: UNK
     Route: 048

REACTIONS (1)
  - AMENORRHOEA [None]
